FAERS Safety Report 7827207-5 (Version None)
Quarter: 2011Q4

REPORT INFORMATION
  Report Type: 
  Country: None (occurrence: None)
  Receive Date: 20111020
  Receipt Date: 20111011
  Transmission Date: 20120403
  Serious: Yes (Other)
  Sender: FDA-Public Use
  Company Number: US-ABBOTT-11P-163-0863255-00

PATIENT
  Sex: Male

DRUGS (4)
  1. HUMIRA [Suspect]
     Indication: PSORIASIS
  2. PLAVIX [Concomitant]
     Indication: PRODUCT USED FOR UNKNOWN INDICATION
  3. UNKNOWN MEDICATION [Concomitant]
     Indication: BLOOD CHOLESTEROL
  4. 2 UNKNOWN ANTI-HYPERTENSIVE MEDICATIONS [Concomitant]
     Indication: HYPERTENSION

REACTIONS (3)
  - BRAIN MASS [None]
  - HEARING IMPAIRED [None]
  - BRAIN NEOPLASM [None]
